FAERS Safety Report 6181210-2 (Version None)
Quarter: 2009Q2

REPORT INFORMATION
  Report Type: 
  Country: None (occurrence: None)
  Receive Date: 20090506
  Receipt Date: 20090424
  Transmission Date: 20091009
  Serious: Yes (Hospitalization)
  Sender: FDA-Public Use
  Company Number: FR-BAYER-200919627GPV

PATIENT
  Age: 87 Year
  Sex: Female

DRUGS (11)
  1. ULTRAVIST 370 [Suspect]
     Indication: COMPUTERISED TOMOGRAM
     Dosage: TOTAL DAILY DOSE: 90 ML
     Route: 042
     Dates: start: 20090213, end: 20090213
  2. LASIX [Concomitant]
  3. TRIATEC [Concomitant]
  4. MINISINTROM [Concomitant]
  5. LEVOTHYROX [Concomitant]
  6. CORDARONE [Concomitant]
  7. XANAX [Concomitant]
  8. CARDENSIEL [Concomitant]
  9. CETIRIZINE [Concomitant]
  10. RISORDAN [Concomitant]
  11. SOLU-MEDROL [Concomitant]

REACTIONS (2)
  - ACUTE PULMONARY OEDEMA [None]
  - RESPIRATORY DISORDER [None]
